FAERS Safety Report 9262378 (Version 1)
Quarter: 2013Q2

REPORT INFORMATION
  Report Type: Spontaneous
  Country: US (occurrence: None)
  Receive Date: 20130425
  Receipt Date: 20130425
  Transmission Date: 20140414
  Serious: Yes (Hospitalization, Other)
  Sender: FDA-Public Use
  Company Number: None

PATIENT
  Age: 59 Year
  Sex: Male
  Weight: 82.7 kg

DRUGS (1)
  1. MOXIFLOXACIN [Suspect]
     Indication: UPPER RESPIRATORY TRACT INFECTION
     Route: 048
     Dates: start: 20130418, end: 20130419

REACTIONS (5)
  - Respiratory depression [None]
  - Nausea [None]
  - Vomiting [None]
  - Joint lock [None]
  - Tendon disorder [None]
